FAERS Safety Report 10162079 (Version 1)
Quarter: 2014Q2

REPORT INFORMATION
  Report Type: Spontaneous
  Country: US (occurrence: None)
  Receive Date: 20140507
  Receipt Date: 20140507
  Transmission Date: 20141212
  Serious: Yes (Hospitalization, Other)
  Sender: FDA-Public Use
  Company Number: 2014-US-005159

PATIENT
  Age: 35 Year
  Sex: Female

DRUGS (1)
  1. XYREM [Suspect]
     Indication: NARCOLEPSY
     Route: 048
     Dates: start: 201107, end: 2011

REACTIONS (7)
  - Connective tissue disorder [None]
  - Systemic lupus erythematosus [None]
  - Depression [None]
  - Weight decreased [None]
  - Nail disorder [None]
  - Feeling abnormal [None]
  - Illusion [None]
